FAERS Safety Report 8137764-X (Version None)
Quarter: 2012Q1

REPORT INFORMATION
  Report Type: 
  Country: None (occurrence: None)
  Receive Date: 20120215
  Receipt Date: 20120202
  Transmission Date: 20120608
  Serious: Yes (Hospitalization)
  Sender: FDA-Public Use
  Company Number: TR-TYCO HEALTHCARE/MALLINCKRODT-T201101695

PATIENT
  Age: 67 Year
  Sex: Male

DRUGS (4)
  1. PIROXICAM [Concomitant]
     Indication: OSTEOARTHRITIS
     Dosage: 10 MG, QD
  2. FUROSEMIDE [Concomitant]
     Indication: CARDIAC FAILURE CONGESTIVE
     Dosage: 40 MG QAM
  3. ANAFRANIL CAP [Suspect]
     Indication: MAJOR DEPRESSION
     Dosage: GRADUALLY INCREASED TO 175 MG DAILY
     Dates: start: 19900101
  4. POTASSIUM CHLORIDE [Concomitant]
     Indication: CARDIAC FAILURE CONGESTIVE
     Dosage: 600 MG, BID

REACTIONS (3)
  - SUICIDAL IDEATION [None]
  - AGRANULOCYTOSIS [None]
  - HEPATITIS [None]
